FAERS Safety Report 25464450 (Version 1)
Quarter: 2025Q2

REPORT INFORMATION
  Report Type: Spontaneous
  Country: DE (occurrence: DE)
  Receive Date: 20250621
  Receipt Date: 20250621
  Transmission Date: 20250716
  Serious: Yes (Other)
  Sender: UCB
  Company Number: None

PATIENT
  Age: 29 Year
  Sex: Female
  Weight: 58 kg

DRUGS (1)
  1. CIMZIA [Suspect]
     Active Substance: CERTOLIZUMAB PEGOL
     Indication: Rheumatoid arthritis
     Route: 058
     Dates: start: 20240301, end: 20241107

REACTIONS (3)
  - Chronic hepatitis [Recovered/Resolved with Sequelae]
  - Autoimmune disorder [Recovered/Resolved with Sequelae]
  - Pruritus [Recovered/Resolved with Sequelae]

NARRATIVE: CASE EVENT DATE: 20241107
